FAERS Safety Report 8811611 (Version 1)
Quarter: 2012Q4

REPORT INFORMATION
  Report Type: 
  Country: CA (occurrence: CA)
  Receive Date: 20120927
  Receipt Date: 20120927
  Transmission Date: 20130627
  Serious: Yes (Other)
  Sender: FDA-Public Use
  Company Number: PHHY2012CA078127

PATIENT
  Sex: Female

DRUGS (1)
  1. SANDOSTATIN LAR [Suspect]
     Indication: ACROMEGALY
     Dosage: 20 mg, every 4 weeks
     Route: 030
     Dates: start: 20041020

REACTIONS (5)
  - Disturbance in attention [Unknown]
  - Hypophagia [Unknown]
  - Nausea [Unknown]
  - Blood glucose decreased [Unknown]
  - Memory impairment [Unknown]
